FAERS Safety Report 4361325-1 (Version None)
Quarter: 2004Q2

REPORT INFORMATION
  Report Type: 
  Country: None (occurrence: None)
  Receive Date: 20040520
  Receipt Date: 20040211
  Transmission Date: 20050107
  Serious: Yes (Hospitalization, Other)
  Sender: FDA-Public Use
  Company Number: DE-MERCK-0402DEU00078

PATIENT
  Age: 64 Year
  Sex: Male
  Weight: 105 kg

DRUGS (7)
  1. ACETYLDIGOXIN [Concomitant]
     Route: 065
  2. ENALAPRIL MALEATE [Concomitant]
     Route: 048
  3. PROSCAR [Suspect]
     Indication: BENIGN PROSTATIC HYPERPLASIA
     Route: 048
     Dates: start: 19990201
  4. FUROSEMIDE SODIUM [Concomitant]
     Route: 065
  5. METOPROLOL [Concomitant]
     Route: 065
  6. PHENPROCOUMON [Concomitant]
     Route: 048
  7. TAMSULOSIN HYDROCHLORIDE [Concomitant]
     Route: 048

REACTIONS (4)
  - ADENOMA BENIGN [None]
  - GASTRIC ADENOMA [None]
  - PROSTATE CANCER [None]
  - URINARY RETENTION [None]
